FAERS Safety Report 18093246 (Version 2)
Quarter: 2022Q2

REPORT INFORMATION
  Report Type: Spontaneous
  Country: US (occurrence: US)
  Receive Date: 20200730
  Receipt Date: 20220420
  Transmission Date: 20220721
  Serious: No
  Sender: FDA-Public Use
  Company Number: US-BIOGEN-2020BI00905151

PATIENT
  Sex: Female

DRUGS (1)
  1. TECFIDERA [Suspect]
     Active Substance: DIMETHYL FUMARATE
     Indication: Multiple sclerosis
     Route: 065
     Dates: start: 20141202

REACTIONS (7)
  - Tension headache [Not Recovered/Not Resolved]
  - Sinusitis [Not Recovered/Not Resolved]
  - Stress [Not Recovered/Not Resolved]
  - Frustration tolerance decreased [Not Recovered/Not Resolved]
  - Multiple sclerosis [Not Recovered/Not Resolved]
  - Hot flush [Recovered/Resolved]
  - Flushing [Not Recovered/Not Resolved]

NARRATIVE: CASE EVENT DATE: 20190101
